FAERS Safety Report 8848942 (Version 1)
Quarter: 2012Q4

REPORT INFORMATION
  Report Type: 
  Country: CA (occurrence: CA)
  Receive Date: 20121019
  Receipt Date: 20121019
  Transmission Date: 20130627
  Serious: Yes (Other)
  Sender: FDA-Public Use
  Company Number: PHMT2006CA02304

PATIENT
  Sex: Male

DRUGS (2)
  1. SANDOSTATIN LAR [Suspect]
     Indication: CARCINOID TUMOUR
     Dosage: 30 mg, every 4 weeks
     Dates: start: 20031228
  2. SANDOSTATIN LAR [Suspect]
     Dosage: 40 mg, every 3 weeks
     Route: 030

REACTIONS (7)
  - Hepatic neoplasm [Unknown]
  - Rectal haemorrhage [Unknown]
  - Flushing [Recovering/Resolving]
  - Muscle spasms [Not Recovered/Not Resolved]
  - Injection site pain [Unknown]
  - Diarrhoea [Not Recovered/Not Resolved]
  - Flatulence [Not Recovered/Not Resolved]
